FAERS Safety Report 8701874 (Version 5)
Quarter: 2013Q1

REPORT INFORMATION
  Report Type: Report from Study
  Country: JP (occurrence: JP)
  Receive Date: 20120803
  Receipt Date: 20130325
  Transmission Date: 20140127
  Serious: Yes (Other)
  Sender: FDA-Public Use
  Company Number: JP-AMGEN-JPNCT2012048333

PATIENT
  Age: 81 Year
  Sex: Male
  Weight: 52 kg

DRUGS (12)
  1. DARBEPOETIN ALFA [Suspect]
     Indication: NEPHROGENIC ANAEMIA
     Dosage: 30 MUG, Q4WK
     Route: 058
     Dates: start: 20111124
  2. DARBEPOETIN ALFA [Suspect]
     Dosage: 60 MUG, UNK
     Route: 058
     Dates: start: 20111222, end: 20120315
  3. DARBEPOETIN ALFA [Suspect]
     Dosage: 120 MUG, UNK
     Route: 058
     Dates: start: 20120412, end: 20121113
  4. ALOSITOL [Concomitant]
     Dosage: UNK
     Route: 048
  5. NU-LOTAN [Concomitant]
     Dosage: 50 MG, QD
     Route: 048
  6. BAYASPIRIN [Concomitant]
     Dosage: UNK
     Route: 048
  7. LOCHOL [Concomitant]
     Dosage: UNK
     Route: 048
  8. FERROMIA [Concomitant]
     Dosage: UNK
     Route: 048
  9. EVIPROSTAT N [Concomitant]
     Dosage: UNK
     Route: 048
  10. PERSANTIN [Concomitant]
     Indication: GLOMERULONEPHRITIS CHRONIC
     Dosage: UNK
     Route: 048
  11. KREMEZIN [Concomitant]
     Indication: GLOMERULONEPHRITIS CHRONIC
     Dosage: UNK
     Route: 048
  12. CONIEL [Concomitant]
     Dosage: UNK
     Route: 048

REACTIONS (2)
  - Renal failure [Recovering/Resolving]
  - Hypertension [Not Recovered/Not Resolved]
